FAERS Safety Report 23699324 (Version 4)
Quarter: 2024Q3

REPORT INFORMATION
  Report Type: Spontaneous
  Country: US (occurrence: US)
  Receive Date: 20240402
  Receipt Date: 20240701
  Transmission Date: 20241016
  Serious: Yes (Other)
  Sender: BRISTOL MYERS SQUIBB
  Company Number: US-BRISTOL-MYERS SQUIBB COMPANY-2024-050880

PATIENT
  Age: 75 Year
  Sex: Female

DRUGS (2)
  1. ORENCIA [Suspect]
     Active Substance: ABATACEPT
     Indication: Product used for unknown indication
     Dosage: ONE SYRINGE (STORE IN REFRIGERATOR IMMEDIATELY)
     Route: 058
  2. NAPROXEN [Concomitant]
     Active Substance: NAPROXEN
     Indication: Product used for unknown indication

REACTIONS (5)
  - Chest pain [Unknown]
  - Pneumonia viral [Unknown]
  - Bronchitis [Unknown]
  - Costochondritis [Unknown]
  - Dizziness [Unknown]

NARRATIVE: CASE EVENT DATE: 20240327
